FAERS Safety Report 7611477-2 (Version None)
Quarter: 2011Q2

REPORT INFORMATION
  Report Type: 
  Country: None (occurrence: None)
  Receive Date: 20110628
  Receipt Date: 20110603
  Transmission Date: 20111010
  Serious: Yes (Hospitalization)
  Sender: FDA-Public Use
  Company Number: 0000000000-2011-000003

PATIENT
  Age: 15 Month
  Sex: Female
  Weight: 18.1439 kg

DRUGS (1)
  1. HUMPHREYS TEETHING RELIEF SWIFT STRIPS [Suspect]
     Indication: TEETHING
     Dosage: 1 STRIP, 2X DAILY 047
     Dates: start: 20110520, end: 20110602

REACTIONS (1)
  - CONVULSION [None]
